FAERS Safety Report 8791103 (Version 2)
Quarter: 2012Q4

REPORT INFORMATION
  Report Type: Spontaneous
  Country: SI (occurrence: None)
  Receive Date: 20120907
  Receipt Date: 20120920
  Transmission Date: 20130627
  Serious: Yes (Other)
  Sender: FDA-Public Use
  Company Number: JPI-P-024901

PATIENT
  Age: 20 Year
  Sex: Female
  Weight: 60 kg

DRUGS (2)
  1. XYREM [Suspect]
     Indication: CATAPLEXY
     Dosage: (3.75 gm,2 in 1 d)
     Route: 048
     Dates: start: 201111, end: 201208
  2. XYREM [Suspect]
     Indication: CATAPLEXY
     Dosage: (2.25 gm,2 in 1 d)
     Route: 048
     Dates: start: 201208

REACTIONS (4)
  - Anxiety [None]
  - Weight decreased [None]
  - Depression [None]
  - Mood altered [None]
